FAERS Safety Report 13846450 (Version 1)
Quarter: 2017Q3

REPORT INFORMATION
  Report Type: Spontaneous
  Country: US (occurrence: US)
  Receive Date: 20170808
  Receipt Date: 20170808
  Transmission Date: 20171127
  Serious: Yes (Other)
  Sender: FDA-Public Use
  Company Number: US-ABBVIE-17P-163-1894837-00

PATIENT
  Sex: Female

DRUGS (3)
  1. KEPPRA [Suspect]
     Active Substance: LEVETIRACETAM
     Indication: PRODUCT USED FOR UNKNOWN INDICATION
     Route: 065
  2. MUCINEX [Suspect]
     Active Substance: GUAIFENESIN
     Indication: PRODUCT USED FOR UNKNOWN INDICATION
     Route: 048
  3. DEPAKOTE [Suspect]
     Active Substance: DIVALPROEX SODIUM
     Indication: PRODUCT USED FOR UNKNOWN INDICATION
     Route: 065

REACTIONS (11)
  - Cardiac failure congestive [Unknown]
  - Insomnia [Unknown]
  - Vein disorder [Unknown]
  - Choking [Unknown]
  - Rash [Unknown]
  - Cough [Unknown]
  - Hepatomegaly [Unknown]
  - Tooth disorder [Unknown]
  - Dysphagia [Unknown]
  - Seizure [Unknown]
  - Gingival pain [Unknown]
